FAERS Safety Report 7392352-8 (Version None)
Quarter: 2011Q2

REPORT INFORMATION
  Report Type: 
  Country: None (occurrence: None)
  Receive Date: 20110404
  Receipt Date: 20110330
  Transmission Date: 20111010
  Serious: No
  Sender: FDA-Public Use
  Company Number: US-PFIZER INC-US-WYE-H14640210

PATIENT
  Sex: Female

DRUGS (8)
  1. EFFEXOR [Suspect]
     Indication: PHOBIA
  2. EFFEXOR [Suspect]
     Indication: BIPOLAR DISORDER
     Dosage: 225.0 MG, 1X/DAY
     Route: 048
     Dates: start: 20090101
  3. EFFEXOR [Suspect]
     Indication: MENTAL IMPAIRMENT
  4. EFFEXOR [Suspect]
     Indication: SCHIZOPHRENIA
  5. XANAX [Concomitant]
  6. ALPRAZOLAM [Concomitant]
  7. LITHIUM [Concomitant]
  8. PHENTERMINE [Concomitant]

REACTIONS (5)
  - MALAISE [None]
  - DRUG WITHDRAWAL SYNDROME [None]
  - WEIGHT INCREASED [None]
  - DRUG SCREEN FALSE POSITIVE [None]
  - SOMNOLENCE [None]
